FAERS Safety Report 6770841-4 (Version None)
Quarter: 2010Q2

REPORT INFORMATION
  Report Type: 
  Country: None (occurrence: None)
  Receive Date: 20100426
  Receipt Date: 20100426
  Transmission Date: 20101027
  Serious: Yes (Hospitalization)
  Sender: FDA-Public Use
  Company Number: None

PATIENT
  Sex: Male
  Weight: 86.4102 kg

DRUGS (2)
  1. CAMPATH [Suspect]
     Indication: RENAL TRANSPLANT
     Dosage: 30MG, QD, IV
     Route: 042
     Dates: start: 20100306
  2. CAMPATH [Suspect]
     Indication: RENAL TRANSPLANT
     Dosage: 30MG, QD, IV
     Route: 042
     Dates: start: 20100310

REACTIONS (2)
  - CELLULITIS [None]
  - PYREXIA [None]
